FAERS Safety Report 11723220 (Version 1)
Quarter: 2015Q4

REPORT INFORMATION
  Report Type: Spontaneous
  Country: US (occurrence: US)
  Receive Date: 20151111
  Receipt Date: 20151111
  Transmission Date: 20160304
  Serious: No
  Sender: FDA-Public Use
  Company Number: US-GLAXOSMITHKLINE-US2015GSK158499

PATIENT
  Sex: Female
  Weight: 76 kg

DRUGS (7)
  1. CEFTIN [Suspect]
     Active Substance: CEFUROXIME AXETIL
     Indication: CHRONIC SINUSITIS
     Dosage: UNK
     Dates: start: 199512
  2. EFFEXOR [Suspect]
     Active Substance: VENLAFAXINE HYDROCHLORIDE
     Indication: ANXIETY
     Dosage: UNK
     Dates: start: 200110
  3. AZITHROMYCIN [Suspect]
     Active Substance: AZITHROMYCIN ANHYDROUS
     Indication: CHRONIC SINUSITIS
  4. EFFEXOR [Suspect]
     Active Substance: VENLAFAXINE HYDROCHLORIDE
     Indication: PANIC REACTION
  5. XANAX [Concomitant]
     Active Substance: ALPRAZOLAM
     Indication: PANIC REACTION
  6. EFFEXOR [Suspect]
     Active Substance: VENLAFAXINE HYDROCHLORIDE
     Indication: AGORAPHOBIA
  7. EFFEXOR [Suspect]
     Active Substance: VENLAFAXINE HYDROCHLORIDE
     Indication: DEPRESSION

REACTIONS (14)
  - Crying [Unknown]
  - Gastrointestinal pain [Unknown]
  - Dysphemia [Unknown]
  - Diarrhoea [Unknown]
  - Abdominal discomfort [Unknown]
  - Anxiety [Unknown]
  - Social avoidant behaviour [Unknown]
  - Hot flush [Unknown]
  - Skin disorder [Unknown]
  - Rash [Unknown]
  - Product substitution issue [Unknown]
  - Drug ineffective [Unknown]
  - Tremor [Unknown]
  - Therapeutic response decreased [Unknown]

NARRATIVE: CASE EVENT DATE: 1995
